FAERS Safety Report 5718382-7 (Version None)
Quarter: 2008Q2

REPORT INFORMATION
  Report Type: 
  Country: None (occurrence: None)
  Receive Date: 20080425
  Receipt Date: 20070312
  Transmission Date: 20081010
  Serious: No
  Sender: FDA-Public Use
  Company Number: A0642842A

PATIENT
  Age: 23 Year
  Sex: Male

DRUGS (1)
  1. DEXEDRINE [Suspect]
     Dosage: 15MG TWICE PER DAY
     Route: 048
     Dates: start: 20020101

REACTIONS (1)
  - ERECTILE DYSFUNCTION [None]
